FAERS Safety Report 15403030 (Version 1)
Quarter: 2018Q3

REPORT INFORMATION
  Report Type: Spontaneous
  Country: JP (occurrence: JP)
  Receive Date: 20180919
  Receipt Date: 20180919
  Transmission Date: 20181010
  Serious: Yes (Hospitalization, Other)
  Sender: FDA-Public Use
  Company Number: JP-PFIZER INC-2018321022

PATIENT
  Age: 73 Year
  Sex: Male

DRUGS (3)
  1. CELECOX [Suspect]
     Active Substance: CELECOXIB
     Indication: RIB FRACTURE
     Dosage: 200 MG, DAILY
     Dates: start: 20180614, end: 20180621
  2. CELECOX [Suspect]
     Active Substance: CELECOXIB
     Indication: CONTUSION
  3. MOHRUS [Concomitant]
     Active Substance: KETOPROFEN

REACTIONS (4)
  - Diabetes mellitus [Unknown]
  - Rash [Unknown]
  - Weight decreased [Not Recovered/Not Resolved]
  - Jaundice [Not Recovered/Not Resolved]

NARRATIVE: CASE EVENT DATE: 20180614
